FAERS Safety Report 17641190 (Version 2)
Quarter: 2020Q2

REPORT INFORMATION
  Report Type: Spontaneous
  Country: US (occurrence: US)
  Receive Date: 20200407
  Receipt Date: 20200410
  Transmission Date: 20200713
  Serious: No
  Sender: FDA-Public Use
  Company Number: US-PFIZER INC-2020144907

PATIENT
  Age: 34 Year
  Sex: Male

DRUGS (9)
  1. ZOLOFT [Suspect]
     Active Substance: SERTRALINE HYDROCHLORIDE
     Indication: GENERALISED ANXIETY DISORDER
     Dosage: 150 MG, UNK (WENT FROM 150MG TO 0MG)
  2. SERTRALINE HCL [Interacting]
     Active Substance: SERTRALINE HYDROCHLORIDE
     Indication: GENERALISED ANXIETY DISORDER
  3. ABILIFY [Interacting]
     Active Substance: ARIPIPRAZOLE
     Dosage: UNK
  4. COGENTIN [Interacting]
     Active Substance: BENZTROPINE MESYLATE
     Dosage: UNK
  5. CLOMIPRAMINE [Interacting]
     Active Substance: CLOMIPRAMINE
     Dosage: UNK
  6. LOSARTAN. [Concomitant]
     Active Substance: LOSARTAN
     Indication: BLOOD PRESSURE ABNORMAL
     Dosage: UNK (LOWEST DOSE)
  7. SERTRALINE HCL [Interacting]
     Active Substance: SERTRALINE HYDROCHLORIDE
     Indication: OBSESSIVE-COMPULSIVE DISORDER
  8. ZOLOFT [Interacting]
     Active Substance: SERTRALINE HYDROCHLORIDE
     Indication: OBSESSIVE-COMPULSIVE DISORDER
  9. SERTRALINE HCL [Interacting]
     Active Substance: SERTRALINE HYDROCHLORIDE
     Indication: MAJOR DEPRESSION
     Dosage: UNK, DAILY (TAKE 1 AND 1/2 TABLETS DAILY)
     Route: 048

REACTIONS (2)
  - Drug interaction [Unknown]
  - Weight decreased [Unknown]
